FAERS Safety Report 4818581-2 (Version None)
Quarter: 2005Q4

REPORT INFORMATION
  Report Type: 
  Country: None (occurrence: None)
  Receive Date: 20051101
  Receipt Date: 20051017
  Transmission Date: 20060501
  Serious: Yes (Death)
  Sender: FDA-Public Use
  Company Number: 2005-0008761

PATIENT
  Age: 31 Year
  Sex: Male

DRUGS (2)
  1. VIREAD [Suspect]
     Indication: HIV INFECTION
     Dosage: 300 MG 1 IN 1 D ORAL
     Route: 048
  2. LAMIVUDINE [Concomitant]

REACTIONS (3)
  - HEPATIC FAILURE [None]
  - RASH MACULO-PAPULAR [None]
  - RASH PRURITIC [None]
